FAERS Safety Report 8009905-6 (Version None)
Quarter: 2011Q4

REPORT INFORMATION
  Report Type: 
  Country: None (occurrence: None)
  Receive Date: 20111228
  Receipt Date: 20111219
  Transmission Date: 20120403
  Serious: Yes (Other)
  Sender: FDA-Public Use
  Company Number: CA-JNJFOC-20111210502

PATIENT
  Sex: Female
  Weight: 94 kg

DRUGS (9)
  1. ASPIRIN [Concomitant]
     Route: 065
  2. ASACOL [Concomitant]
     Route: 065
  3. EFFEXOR [Concomitant]
     Route: 065
  4. MULTI-VITAMINS [Concomitant]
     Route: 065
  5. ALL OTHER THERAPEUTICS [Concomitant]
     Route: 065
  6. NITROGLYCERIN [Concomitant]
     Route: 065
  7. REMICADE [Suspect]
     Indication: COLITIS ULCERATIVE
     Route: 042
  8. CRESTOR [Concomitant]
     Route: 065
  9. PERINDOPRIL ERBUMINE [Concomitant]
     Route: 065

REACTIONS (1)
  - BREAST MASS [None]
